FAERS Safety Report 6651168-8 (Version None)
Quarter: 2010Q1

REPORT INFORMATION
  Report Type: 
  Country: None (occurrence: None)
  Receive Date: 20100325
  Receipt Date: 20100316
  Transmission Date: 20100710
  Serious: Yes (Hospitalization)
  Sender: FDA-Public Use
  Company Number: FR-KINGPHARMUSA00001-K201000313

PATIENT
  Age: 61 Year
  Sex: Male

DRUGS (10)
  1. ALTACE [Suspect]
     Dosage: 10 MG, QD
     Route: 048
  2. PRAZOSIN HCL [Suspect]
     Dosage: UNK
     Dates: end: 20091218
  3. NEBIVOLOL HCL [Suspect]
     Dosage: 5 MG, QD
  4. AMLOR [Suspect]
     Dosage: 10 MG, QD
  5. ESIDRIX [Suspect]
     Dosage: 25 MG, QD
  6. TEGRETOL [Concomitant]
     Dosage: 200 MG, UNK
  7. KARDEGIC [Concomitant]
     Dosage: 75 MG, UNK
  8. CRESTOR [Concomitant]
     Dosage: 10 MG, UNK
  9. GLUCOPHAGE [Concomitant]
     Dosage: 500 MG, UNK
  10. NEXIUM [Concomitant]
     Dosage: 20 MG, UNK

REACTIONS (4)
  - DRUG INTERACTION [None]
  - LOSS OF CONSCIOUSNESS [None]
  - MALAISE [None]
  - ORTHOSTATIC HYPOTENSION [None]
